FAERS Safety Report 14892808 (Version 1)
Quarter: 2018Q2

REPORT INFORMATION
  Report Type: Spontaneous
  Country: US (occurrence: US)
  Receive Date: 20180514
  Receipt Date: 20180514
  Transmission Date: 20180711
  Serious: Yes (Hospitalization)
  Sender: FDA-Public Use
  Company Number: PHHY2018US077206

PATIENT
  Age: 49 Year
  Sex: Female

DRUGS (4)
  1. ATORVASTATIN [Concomitant]
     Active Substance: ATORVASTATIN
     Indication: HYPERLIPIDAEMIA
     Dosage: 80 MG, QD
     Route: 065
  2. ASPIRIN. [Concomitant]
     Active Substance: ASPIRIN
     Indication: ANTIPLATELET THERAPY
     Dosage: 325 MG, QD
     Route: 065
  3. CLOPIDOGREL [Concomitant]
     Active Substance: CLOPIDOGREL BISULFATE
     Indication: ANTIPLATELET THERAPY
     Dosage: 75 MG, QD
     Route: 065
  4. NILOTINIB [Suspect]
     Active Substance: NILOTINIB
     Indication: CHRONIC MYELOID LEUKAEMIA
     Route: 065

REACTIONS (8)
  - Dysarthria [Unknown]
  - Myocardial infarction [Unknown]
  - Hypoaesthesia [Unknown]
  - Carotid artery stenosis [Unknown]
  - Paraesthesia [Unknown]
  - Transient ischaemic attack [Unknown]
  - Hemiparesis [Unknown]
  - Angiopathy [Recovering/Resolving]

NARRATIVE: CASE EVENT DATE: 2017
